FAERS Safety Report 9647656 (Version 2)
Quarter: 2014Q1

REPORT INFORMATION
  Report Type: Spontaneous
  Country: GB (occurrence: GB)
  Receive Date: 20131028
  Receipt Date: 20140203
  Transmission Date: 20141002
  Serious: Yes (Life-Threatening, Hospitalization, Disabling)
  Sender: FDA-Public Use
  Company Number: GB-ACCORD-020028

PATIENT
  Age: 27 Year
  Sex: Male

DRUGS (2)
  1. VENLAFAXINE/VENLAFAXINE HYDROCHLORIDE [Suspect]
     Indication: DEPRESSION
     Route: 048
     Dates: start: 20130101, end: 20131004
  2. QUETIAPINE [Suspect]
     Indication: DEPRESSION
     Route: 048
     Dates: start: 20110516, end: 20130930

REACTIONS (1)
  - Congestive cardiomyopathy [Not Recovered/Not Resolved]
